FAERS Safety Report 20046765 (Version 3)
Quarter: 2021Q4

REPORT INFORMATION
  Report Type: Spontaneous
  Country: US (occurrence: US)
  Receive Date: 20211109
  Receipt Date: 20211124
  Transmission Date: 20220303
  Serious: No
  Sender: FDA-Public Use
  Company Number: US-NOVARTISTESTPH-NVSC2021US255095

PATIENT
  Sex: Male

DRUGS (2)
  1. TAFINLAR [Suspect]
     Active Substance: DABRAFENIB MESYLATE
     Indication: Thyroid cancer
     Dosage: 150 MG, Q12H
     Route: 048
     Dates: start: 20211020
  2. TAFINLAR [Suspect]
     Active Substance: DABRAFENIB MESYLATE
     Indication: Dyspnoea
     Dosage: 150 MG, BID
     Route: 048
     Dates: start: 202110

REACTIONS (6)
  - Flatulence [Unknown]
  - Hyperkeratosis [Unknown]
  - Diarrhoea [Unknown]
  - Weight increased [Unknown]
  - Oedema [Unknown]
  - Swelling [Unknown]
